FAERS Safety Report 13467581 (Version 9)
Quarter: 2022Q1

REPORT INFORMATION
  Report Type: Spontaneous
  Country: US (occurrence: US)
  Receive Date: 20170421
  Receipt Date: 20220204
  Transmission Date: 20220423
  Serious: Yes (Other)
  Sender: FDA-Public Use
  Company Number: US-PFIZER INC-2017038221

PATIENT
  Age: 70 Year
  Sex: Female
  Weight: 54 kg

DRUGS (7)
  1. PREMPRO [Suspect]
     Active Substance: ESTROGENS, CONJUGATED\MEDROXYPROGESTERONE ACETATE
     Indication: Hot flush
     Dosage: 1 DF, 1X/DAY (ESTROGENS, CONJUGATED: 0.45 MG/MEDROXYPROGESTERONE: 1.5 MG)
     Route: 048
     Dates: start: 1992
  2. PREMPRO [Suspect]
     Active Substance: ESTROGENS, CONJUGATED\MEDROXYPROGESTERONE ACETATE
     Indication: Night sweats
     Dosage: UNK, 1X/DAY [0.45 AND 1.5 TAKES ONE DOSE AT NIGHT]
  3. PREMPRO [Suspect]
     Active Substance: ESTROGENS, CONJUGATED\MEDROXYPROGESTERONE ACETATE
     Indication: Menopause
  4. PREMPRO [Suspect]
     Active Substance: ESTROGENS, CONJUGATED\MEDROXYPROGESTERONE ACETATE
     Indication: Memory impairment
  5. PREMPRO [Suspect]
     Active Substance: ESTROGENS, CONJUGATED\MEDROXYPROGESTERONE ACETATE
     Indication: Insomnia
  6. PROZAC [Concomitant]
     Active Substance: FLUOXETINE HYDROCHLORIDE
     Indication: Family stress
     Dosage: UNK
     Dates: start: 2005, end: 2016
  7. XANAX [Concomitant]
     Active Substance: ALPRAZOLAM
     Indication: Sleep disorder
     Dosage: UNK
     Dates: start: 2005

REACTIONS (11)
  - Suicidal ideation [Unknown]
  - Withdrawal syndrome [Unknown]
  - Insomnia [Unknown]
  - Depressive symptom [Unknown]
  - Memory impairment [Unknown]
  - Panic disorder [Unknown]
  - Illness [Recovered/Resolved]
  - Viral infection [Recovered/Resolved]
  - Personality change [Not Recovered/Not Resolved]
  - Fall [Unknown]
  - Product dose omission issue [Unknown]

NARRATIVE: CASE EVENT DATE: 20170101
